FAERS Safety Report 5797481-8 (Version None)
Quarter: 2008Q2

REPORT INFORMATION
  Report Type: 
  Country: None (occurrence: None)
  Receive Date: 20080630
  Receipt Date: 20080612
  Transmission Date: 20081010
  Serious: Yes (Hospitalization)
  Sender: FDA-Public Use
  Company Number: 2008AL003429

PATIENT
  Age: 87 Year
  Sex: Male
  Weight: 83.4619 kg

DRUGS (3)
  1. DIGOXIN [Suspect]
     Indication: ATRIAL FIBRILLATION
     Dosage: 0.25MG, DAILY PO
     Route: 048
     Dates: end: 20080401
  2. TOPROL-XL [Concomitant]
  3. COUMADIN [Concomitant]

REACTIONS (3)
  - ASTHENIA [None]
  - HEART RATE ABNORMAL [None]
  - MALAISE [None]
